FAERS Safety Report 11899042 (Version 2)
Quarter: 2016Q4

REPORT INFORMATION
  Report Type: Spontaneous
  Country: US (occurrence: US)
  Receive Date: 20160108
  Receipt Date: 20161128
  Transmission Date: 20170206
  Serious: Yes (Hospitalization)
  Sender: FDA-Public Use
  Company Number: US-PFIZER INC-2015478101

PATIENT
  Age: 65 Year
  Sex: Female

DRUGS (22)
  1. ASPIRIN. [Concomitant]
     Active Substance: ASPIRIN
     Dosage: 81 MG, DAILY (EVERY MORNING)
     Route: 048
  2. BUMETANIDE. [Concomitant]
     Active Substance: BUMETANIDE
     Dosage: 1 MG, 2X/DAY
     Route: 048
  3. CEPHALEXIN. [Concomitant]
     Active Substance: CEPHALEXIN
     Dosage: 500 MG, 4X/DAY (FOR 10 DAYS)
     Route: 048
  4. INSULIN [Concomitant]
     Active Substance: INSULIN NOS
     Dosage: 5 IU, 3X/DAY (TAKE BEFORE MEALS)
     Route: 058
  5. RAPAMUNE [Suspect]
     Active Substance: SIROLIMUS
     Dosage: 2 MG, ALTERNATE DAY (EVERY 48 HOURS)
     Route: 048
  6. CARVEDILOL. [Concomitant]
     Active Substance: CARVEDILOL
     Dosage: 12.5 MG, 2X/DAY
     Route: 048
  7. INSULIN [Concomitant]
     Active Substance: INSULIN NOS
     Dosage: 5 IU, UNK (WITH EVERY MEAL PLUS SLIDING SCALE WITH 1 UNIT FOR EVERY 50 MG/DL ABOVE 150)
  8. INSULIN GLARGINE [Concomitant]
     Active Substance: INSULIN GLARGINE
     Dosage: 35 IU, 1X/DAY (AT BEDTIME)
     Route: 058
  9. OMEPRAZOLE. [Concomitant]
     Active Substance: OMEPRAZOLE
     Dosage: 20 MG, DAILY
     Route: 048
  10. RAPAMUNE [Suspect]
     Active Substance: SIROLIMUS
     Indication: RENAL TRANSPLANT
     Dosage: 1 MG, ALTERNATE DAY (EVERY 48 HOURS)
     Route: 048
  11. VITAMIN D [Concomitant]
     Active Substance: CHOLECALCIFEROL
     Dosage: 1000 IU, DAILY
     Route: 048
  12. FOSFOMYCIN TROMETHAMINE [Concomitant]
     Active Substance: FOSFOMYCIN TROMETHAMINE
     Dosage: 1 DF, WEEKLY
     Route: 048
  13. ISOSORBIDE MONONITRATE. [Concomitant]
     Active Substance: ISOSORBIDE MONONITRATE
     Dosage: 30 MG, DAILY
     Route: 048
  14. XALATAN [Concomitant]
     Active Substance: LATANOPROST
     Dosage: 0.005 %, 1X/DAY (AT BEDTIME. USE IN AFFECTED EYE (S))
     Route: 047
  15. LORATADINE. [Concomitant]
     Active Substance: LORATADINE
     Dosage: 10 MG, DAILY
     Route: 048
  16. POTASSIUM CHLORIDE. [Concomitant]
     Active Substance: POTASSIUM CHLORIDE
     Dosage: 20 MEQ, 2X/DAY
  17. ASCORBIC ACID. [Concomitant]
     Active Substance: ASCORBIC ACID
     Dosage: 1000 MG, DAILY, (TAKE 4 TABLETS BY MOUTH DAILY)
     Route: 048
  18. FERROUS SULFATE. [Concomitant]
     Active Substance: FERROUS SULFATE
     Dosage: 324 MG, 3X/DAY  (FERROUS SULFATE 324 (65 FE) MG TAKE 1 TABLET BY MOUTH 3 TIMES)
     Route: 048
  19. HYDROCODONE/ACETAMINOPHEN [Concomitant]
     Active Substance: ACETAMINOPHEN\HYDROCODONE
     Indication: PAIN
     Dosage: 1-2 TABS BY MOUTH EVERY ERY 6 H AS NEEDED)
     Route: 048
  20. MYFORTIC [Concomitant]
     Active Substance: MYCOPHENOLATE SODIUM
     Indication: RENAL TRANSPLANT
     Dosage: 2 DF, 2X/DAY (2 TABLET BY MOUTH 2 TIMES DAILY)
     Route: 048
  21. NEOMYCIN/POLYMYXIN/HYDROCORTISONE [Concomitant]
     Dosage: 4 GTT, UNK
     Route: 047
  22. NEURONTIN [Concomitant]
     Active Substance: GABAPENTIN
     Dosage: 100 MG, 3X/DAY
     Route: 048

REACTIONS (1)
  - Urinary tract infection [Unknown]
